FAERS Safety Report 6489584-X (Version None)
Quarter: 2009Q4

REPORT INFORMATION
  Report Type: 
  Country: None (occurrence: None)
  Receive Date: 20091210
  Receipt Date: 20091202
  Transmission Date: 20100525
  Serious: Yes (Death, Hospitalization)
  Sender: FDA-Public Use
  Company Number: IR-NOVOPROD-301167

PATIENT
  Age: 88 Year
  Sex: Male
  Weight: 70 kg

DRUGS (4)
  1. NOVOMIX 30 FLEXPEN [Suspect]
     Indication: DIABETES MELLITUS
     Dosage: 24 U, QD
     Route: 058
     Dates: start: 20080101, end: 20090729
  2. SIMVASTATIN [Concomitant]
     Indication: HYPERCHOLESTEROLAEMIA
     Dosage: 20 MG, QD
     Route: 048
     Dates: start: 20050101
  3. CAPTOPRIL [Concomitant]
     Indication: HYPERTENSION
     Dosage: 25 MG, QD
     Route: 048
     Dates: start: 20050101
  4. ASPIRIN [Concomitant]
     Indication: PROPHYLAXIS
     Dosage: 80 MG, QD
     Dates: start: 20050101

REACTIONS (1)
  - GASTROINTESTINAL HAEMORRHAGE [None]
